FAERS Safety Report 10237893 (Version 2)
Quarter: 2015Q4

REPORT INFORMATION
  Report Type: Spontaneous
  Country: US (occurrence: US)
  Receive Date: 20140616
  Receipt Date: 20151009
  Transmission Date: 20160304
  Serious: No
  Sender: FDA-Public Use
  Company Number: US-BIOGENIDEC-2014BI054998

PATIENT
  Age: 61 Year
  Sex: Female

DRUGS (3)
  1. AVONEX [Suspect]
     Active Substance: INTERFERON BETA-1A
     Indication: MULTIPLE SCLEROSIS
     Route: 030
  2. AVONEX [Suspect]
     Active Substance: INTERFERON BETA-1A
     Indication: MULTIPLE SCLEROSIS
     Route: 030
     Dates: start: 19970201
  3. AVONEX [Suspect]
     Active Substance: INTERFERON BETA-1A
     Indication: MULTIPLE SCLEROSIS
     Route: 030
     Dates: start: 201510

REACTIONS (12)
  - Fatigue [Not Recovered/Not Resolved]
  - Procedural anxiety [Unknown]
  - Pain [Recovered/Resolved]
  - Chills [Recovered/Resolved]
  - Multiple sclerosis [Not Recovered/Not Resolved]
  - Coordination abnormal [Recovered/Resolved]
  - Mental impairment [Recovered/Resolved]
  - Influenza like illness [Recovered/Resolved]
  - Balance disorder [Not Recovered/Not Resolved]
  - Hypersomnia [Recovered/Resolved]
  - Drug dose omission [Not Recovered/Not Resolved]
  - Somnolence [Recovered/Resolved]
